FAERS Safety Report 13495101 (Version 1)
Quarter: 2017Q2

REPORT INFORMATION
  Report Type: Spontaneous
  Country: US (occurrence: US)
  Receive Date: 20170428
  Receipt Date: 20170428
  Transmission Date: 20170830
  Serious: Yes (Other)
  Sender: FDA-Public Use
  Company Number: US-AMGEN-USASP2017063349

PATIENT
  Sex: Female
  Weight: 95.24 kg

DRUGS (14)
  1. INSULIN REGULAR HM [Concomitant]
     Active Substance: INSULIN NOS
  2. METFORMIN HCL [Concomitant]
     Active Substance: METFORMIN HYDROCHLORIDE
  3. DIOVAN [Concomitant]
     Active Substance: VALSARTAN
  4. CYMBALTA [Concomitant]
     Active Substance: DULOXETINE HYDROCHLORIDE
     Dosage: 60 MG, BID
     Route: 048
  5. LOVASTATIN. [Concomitant]
     Active Substance: LOVASTATIN
  6. FUROSEMIDE. [Concomitant]
     Active Substance: FUROSEMIDE
  7. SYMBICORT [Concomitant]
     Active Substance: BUDESONIDE\FORMOTEROL FUMARATE DIHYDRATE
  8. ULTRAM ER [Concomitant]
     Active Substance: TRAMADOL HYDROCHLORIDE
     Dosage: 200 MG, QD
     Route: 048
  9. GABAPENTIN. [Concomitant]
     Active Substance: GABAPENTIN
     Dosage: 300 MG, TID
     Route: 048
  10. FLEXERIL [Concomitant]
     Active Substance: CYCLOBENZAPRINE HYDROCHLORIDE
     Dosage: 10 MG, UNK
     Route: 048
  11. LIPITOR [Concomitant]
     Active Substance: ATORVASTATIN CALCIUM
  12. ENBREL [Suspect]
     Active Substance: ETANERCEPT
     Indication: RHEUMATOID ARTHRITIS
     Dosage: 50 MG, QWK
     Route: 058
     Dates: start: 2016, end: 2016
  13. NORCO [Concomitant]
     Active Substance: ACETAMINOPHEN\HYDROCODONE BITARTRATE
     Dosage: 10-325 MG EVERY 6 HOURS
     Route: 048
  14. PLAQUENIL [Concomitant]
     Active Substance: HYDROXYCHLOROQUINE SULFATE
     Dosage: 200 MG, 2 TIMES/WK
     Route: 048

REACTIONS (5)
  - Drug ineffective [Unknown]
  - Dry eye [Unknown]
  - Rheumatoid arthritis [Unknown]
  - Cataract [Unknown]
  - Eye haemorrhage [Unknown]

NARRATIVE: CASE EVENT DATE: 2016
